FAERS Safety Report 7111320-4 (Version None)
Quarter: 2010Q4

REPORT INFORMATION
  Report Type: 
  Country: None (occurrence: None)
  Receive Date: 20101118
  Receipt Date: 20101105
  Transmission Date: 20110411
  Serious: Yes (Hospitalization)
  Sender: FDA-Public Use
  Company Number: PHHY2010IE66406

PATIENT
  Weight: 101.7 kg

DRUGS (6)
  1. TASIGNA [Suspect]
     Indication: CHRONIC MYELOID LEUKAEMIA
     Dosage: 400 MG
     Dates: start: 20090326, end: 20090330
  2. DASATINIB [Suspect]
  3. PREDNISOLONE [Concomitant]
     Dosage: 5 MG, QD
     Dates: start: 20100914
  4. HYTRIN [Concomitant]
  5. LANSOPRAZOLE [Concomitant]
     Dosage: 30 MG, QD
  6. MYCOSTATIN [Concomitant]
     Dosage: 2 MLS QDS

REACTIONS (7)
  - ADVERSE DRUG REACTION [None]
  - HEADACHE [None]
  - LOWER RESPIRATORY TRACT INFECTION [None]
  - MALAISE [None]
  - PLEURAL EFFUSION [None]
  - PYREXIA [None]
  - RASH [None]
